FAERS Safety Report 24555777 (Version 1)
Quarter: 2024Q4

REPORT INFORMATION
  Report Type: Other
  Country: US (occurrence: US)
  Receive Date: 20241028
  Receipt Date: 20241028
  Transmission Date: 20250115
  Serious: No
  Sender: AMNEAL
  Company Number: US-AMNEAL PHARMACEUTICALS-2024-AMRX-01650

PATIENT

DRUGS (1)
  1. FELBAMATE [Suspect]
     Active Substance: FELBAMATE
     Indication: Product used for unknown indication
     Dosage: 2 PILLS 2X/DAY
     Route: 065

REACTIONS (11)
  - Loss of personal independence in daily activities [Unknown]
  - Movement disorder [Unknown]
  - Feeding disorder [Unknown]
  - Dyspnoea [Unknown]
  - Incoherent [Unknown]
  - Hypertension [Unknown]
  - Fatigue [Unknown]
  - Asthenia [Unknown]
  - Disturbance in attention [Unknown]
  - Therapeutic product ineffective [Unknown]
  - Product substitution issue [Unknown]

NARRATIVE: CASE EVENT DATE: 20240121
